FAERS Safety Report 16341080 (Version 1)
Quarter: 2019Q2

REPORT INFORMATION
  Report Type: Report from Study
  Country: DE (occurrence: DE)
  Receive Date: 20190522
  Receipt Date: 20190522
  Transmission Date: 20190711
  Serious: Yes (Other)
  Sender: FDA-Public Use
  Company Number: DE-TEVA-2019-DE-1054039

PATIENT
  Sex: Male

DRUGS (4)
  1. BACOLFEN [Concomitant]
     Active Substance: BACLOFEN
  2. TOVIAZ [Concomitant]
     Active Substance: FESOTERODINE FUMARATE
  3. CITALOPRAM [Concomitant]
     Active Substance: CITALOPRAM HYDROBROMIDE
  4. COPAXONE [Suspect]
     Active Substance: GLATIRAMER ACETATE
     Indication: MULTIPLE SCLEROSIS
     Dates: start: 20150504, end: 20190415

REACTIONS (1)
  - Primary progressive multiple sclerosis [Unknown]

NARRATIVE: CASE EVENT DATE: 2019
